FAERS Safety Report 22258912 (Version 2)
Quarter: 2023Q2

REPORT INFORMATION
  Report Type: Spontaneous
  Country: CA (occurrence: CA)
  Receive Date: 20230427
  Receipt Date: 20230427
  Transmission Date: 20230721
  Serious: Yes (Death)
  Sender: FDA-Public Use
  Company Number: CA-PFIZER INC-202300164923

PATIENT
  Age: 25 Year
  Sex: Female

DRUGS (1)
  1. TRIAZOLAM [Interacting]
     Active Substance: TRIAZOLAM
     Dosage: UNK
     Route: 048

REACTIONS (1)
  - Alcohol interaction [Fatal]
